FAERS Safety Report 14139998 (Version 3)
Quarter: 2018Q1

REPORT INFORMATION
  Report Type: Spontaneous
  Country: JP (occurrence: JP)
  Receive Date: 20171030
  Receipt Date: 20180201
  Transmission Date: 20180508
  Serious: No
  Sender: FDA-Public Use
  Company Number: JP-AMGEN-JPNSP2017161931

PATIENT
  Age: 67 Year
  Sex: Male

DRUGS (1)
  1. RANMARK [Suspect]
     Active Substance: DENOSUMAB
     Indication: PRODUCT USED FOR UNKNOWN INDICATION
     Dosage: 120 MG, Q4WK
     Route: 058

REACTIONS (1)
  - Tooth disorder [Recovered/Resolved]

NARRATIVE: CASE EVENT DATE: 20170911
